FAERS Safety Report 4600856-3 (Version None)
Quarter: 2005Q1

REPORT INFORMATION
  Report Type: 
  Country: None (occurrence: None)
  Receive Date: 20050304
  Receipt Date: 20050221
  Transmission Date: 20050727
  Serious: Yes (Disabling)
  Sender: FDA-Public Use
  Company Number: 2004GB02574

PATIENT
  Age: 70 Year
  Sex: Female

DRUGS (5)
  1. GEFITINIB [Suspect]
     Indication: NON-SMALL CELL LUNG CANCER
     Dosage: 250 MG QD PO
     Route: 048
     Dates: start: 20040927, end: 20041010
  2. RANITIDINE [Concomitant]
  3. MELOXICAM [Concomitant]
  4. BENDROFLUAZIDE [Concomitant]
  5. CO-DYDRAMOL [Concomitant]

REACTIONS (10)
  - DIARRHOEA [None]
  - DYSPNOEA [None]
  - FEELING HOT [None]
  - HAEMOGLOBIN DECREASED [None]
  - INFLUENZA LIKE ILLNESS [None]
  - ORAL PAIN [None]
  - PULMONARY MASS [None]
  - PULMONARY TOXICITY [None]
  - SWELLING FACE [None]
  - WHITE BLOOD CELL COUNT DECREASED [None]
